FAERS Safety Report 7866975-3 (Version None)
Quarter: 2011Q4

REPORT INFORMATION
  Report Type: 
  Country: None (occurrence: None)
  Receive Date: 20111028
  Receipt Date: 20100301
  Transmission Date: 20120403
  Serious: Yes (Hospitalization)
  Sender: FDA-Public Use
  Company Number: US-ACTELION-A-NJ2010-34160

PATIENT

DRUGS (18)
  1. POTASSIUM [Concomitant]
  2. VITAMIN B-12 [Concomitant]
  3. OXYGEN [Concomitant]
  4. ASPIRIN [Concomitant]
  5. TEMAZEPAM [Concomitant]
  6. IRON [Concomitant]
  7. TORSEMIDE [Concomitant]
  8. ASCORBIC ACID [Concomitant]
  9. ZINC [Concomitant]
  10. CARDIZEM [Concomitant]
  11. FISH OIL [Concomitant]
  12. OSCAL [Concomitant]
  13. ALBUTEROL [Concomitant]
  14. TRACLEER [Suspect]
     Indication: PULMONARY ARTERIAL HYPERTENSION
     Dosage: 62.5 MG, BID
     Route: 048
     Dates: start: 20091218
  15. ALLOPURINOL [Concomitant]
  16. VITAMIN B COMPLEX CAP [Concomitant]
  17. GARLIC [Concomitant]
  18. TYLENOL-500 [Concomitant]

REACTIONS (6)
  - OXYGEN SATURATION DECREASED [None]
  - CYSTITIS [None]
  - CARDIAC FAILURE CONGESTIVE [None]
  - OEDEMA PERIPHERAL [None]
  - DIZZINESS [None]
  - PULMONARY OEDEMA [None]
